FAERS Safety Report 8612982 (Version 3)
Quarter: 2012Q4

REPORT INFORMATION
  Report Type: 
  Country: US (occurrence: US)
  Receive Date: 20120613
  Receipt Date: 20121008
  Transmission Date: 20130627
  Serious: Yes (Disabling, Other)
  Sender: FDA-Public Use
  Company Number: US-ASTRAZENECA-2012SE37441

PATIENT
  Age: 47 Year
  Sex: Female

DRUGS (5)
  1. NEXIUM [Suspect]
     Route: 048
  2. ENTOCORT [Suspect]
     Route: 048
  3. PEPCID [Concomitant]
     Indication: OESOPHAGEAL DILATATION
  4. PEPCID [Concomitant]
     Indication: DYSPHAGIA
  5. PLAVIX [Concomitant]

REACTIONS (23)
  - Myocardial infarction [Unknown]
  - Cerebrovascular accident [Unknown]
  - Blindness unilateral [Unknown]
  - Oesophageal spasm [Unknown]
  - Asthenia [Unknown]
  - Regurgitation [Unknown]
  - Hiccups [Unknown]
  - Oesophageal hypomotility [Unknown]
  - Impaired gastric emptying [Unknown]
  - Weight increased [Unknown]
  - Crohn^s disease [Unknown]
  - Chest pain [Unknown]
  - Musculoskeletal pain [Unknown]
  - Impaired gastric emptying [Unknown]
  - Drug intolerance [Unknown]
  - Adverse drug reaction [Unknown]
  - Gastrointestinal disorder [Unknown]
  - Dysphagia [Unknown]
  - Abdominal pain [Unknown]
  - Malaise [Unknown]
  - Diarrhoea [Unknown]
  - Colitis microscopic [Unknown]
  - Drug dose omission [Unknown]
